FAERS Safety Report 6552219-1 (Version None)
Quarter: 2010Q1

REPORT INFORMATION
  Report Type: 
  Country: None (occurrence: None)
  Receive Date: 20100126
  Receipt Date: 20100118
  Transmission Date: 20100710
  Serious: Yes (Hospitalization, Other)
  Sender: FDA-Public Use
  Company Number: US-AMGEN-US385424

PATIENT
  Sex: Female

DRUGS (10)
  1. NPLATE [Suspect]
     Indication: IDIOPATHIC THROMBOCYTOPENIC PURPURA
     Route: 058
     Dates: start: 20091204, end: 20100106
  2. NPLATE [Suspect]
     Dates: start: 20091204, end: 20091204
  3. FEMARA [Suspect]
     Dates: start: 20070123, end: 20100112
  4. COZAAR [Concomitant]
     Route: 048
  5. GLYBURIDE [Concomitant]
     Route: 048
  6. VITAMIN D [Concomitant]
  7. CALCIUM [Concomitant]
  8. COMBIVENT [Concomitant]
  9. ASPIRIN [Concomitant]
     Route: 048
     Dates: end: 20100112
  10. ZANTAC [Concomitant]
     Route: 048

REACTIONS (21)
  - ATELECTASIS [None]
  - BIOPSY BONE MARROW ABNORMAL [None]
  - CARDIAC FAILURE CONGESTIVE [None]
  - CELLULITIS [None]
  - CHRONIC OBSTRUCTIVE PULMONARY DISEASE [None]
  - COAGULOPATHY [None]
  - DEEP VEIN THROMBOSIS [None]
  - DIVERTICULITIS [None]
  - GASTRIC HAEMORRHAGE [None]
  - GASTROINTESTINAL HAEMORRHAGE [None]
  - HYPERPLASIA [None]
  - HYPOVOLAEMIA [None]
  - HYPOXIA [None]
  - IDIOPATHIC THROMBOCYTOPENIC PURPURA [None]
  - MARROW HYPERPLASIA [None]
  - OEDEMA PERIPHERAL [None]
  - OESOPHAGEAL CANDIDIASIS [None]
  - PLATELET COUNT INCREASED [None]
  - PNEUMONIA [None]
  - PULMONARY EMBOLISM [None]
  - PULMONARY THROMBOSIS [None]
